FAERS Safety Report 22356771 (Version 2)
Quarter: 2023Q2

REPORT INFORMATION
  Report Type: Report from Study
  Country: US (occurrence: US)
  Receive Date: 20230523
  Receipt Date: 20230530
  Transmission Date: 20230721
  Serious: Yes (Hospitalization, Other)
  Sender: FDA-Public Use
  Company Number: US-PFIZER INC-US-GBT-019230

PATIENT
  Age: 23 Year
  Sex: Male

DRUGS (17)
  1. VOXELOTOR [Suspect]
     Active Substance: VOXELOTOR
     Indication: Anaemia
     Dosage: 1500 MG, 1X/DAY
     Dates: start: 20200109, end: 20220507
  2. BUPRENORPHINE HYDROCHLORIDE [Concomitant]
     Active Substance: BUPRENORPHINE HYDROCHLORIDE
     Indication: Sickle cell disease
     Dosage: 1 PATCH APPLY EVERY WEEK, 10 MCG/HR TRANSDERMAL PATCH
     Route: 062
     Dates: start: 20220629
  3. MS CONTIN [Concomitant]
     Active Substance: MORPHINE SULFATE
     Indication: Sickle cell disease
     Dosage: 15 MG, 2X/DAY
     Route: 048
     Dates: start: 20180831, end: 20191213
  4. MS CONTIN [Concomitant]
     Active Substance: MORPHINE SULFATE
     Dosage: 30 MG, 2X/DAY
     Route: 048
     Dates: start: 20191213, end: 20220520
  5. MS CONTIN [Concomitant]
     Active Substance: MORPHINE SULFATE
     Dosage: 45 MG, 2X/DAY
     Route: 048
     Dates: start: 20220520, end: 20220629
  6. GABAPENTIN [Concomitant]
     Active Substance: GABAPENTIN
     Indication: Sickle cell disease
     Dosage: 800 MG, 3X/DAY
     Route: 048
     Dates: start: 20211220
  7. GLUTAMINE [LEVOGLUTAMIDE] [Concomitant]
     Indication: Sickle cell disease
     Dosage: 10 G, 2X/DAY
     Route: 048
     Dates: start: 20190603
  8. DILAUDID [Concomitant]
     Active Substance: HYDROMORPHONE HYDROCHLORIDE
     Indication: Sickle cell disease
     Dosage: 4 MG, Q4H PRN
     Route: 048
     Dates: start: 20220401, end: 20220507
  9. HYDROXYUREA [Concomitant]
     Active Substance: HYDROXYUREA
     Indication: Sickle cell disease
     Dosage: 1500 MG, 1X/DAY
     Route: 048
     Dates: start: 20160926
  10. OXYCODONE [Concomitant]
     Active Substance: OXYCODONE
     Indication: Sickle cell disease
     Dosage: 10 MG, Q4H PRN
     Route: 048
     Dates: start: 20160926, end: 20201106
  11. OXYCODONE [Concomitant]
     Active Substance: OXYCODONE
     Dosage: 15 MG, Q4H PRN
     Route: 048
     Dates: start: 20201106, end: 20211220
  12. OXYCODONE [Concomitant]
     Active Substance: OXYCODONE
     Dosage: 30 MG, Q4H PRN
     Route: 048
     Dates: start: 20211220
  13. COVID-19 VACCINE [Concomitant]
     Indication: COVID-19 prophylaxis
     Dosage: 30 UG, SINGLE
     Route: 030
     Dates: start: 20210818, end: 20210818
  14. COVID-19 VACCINE [Concomitant]
     Dosage: 30 UG, SINGLE
     Route: 030
     Dates: start: 20211117, end: 20211117
  15. COVID-19 VACCINE [Concomitant]
     Dosage: 30 UG, SINGLE
     Route: 030
     Dates: start: 20220506, end: 20220506
  16. FOLIC ACID [Concomitant]
     Active Substance: FOLIC ACID
     Indication: Sickle cell disease
     Dosage: 1 MG, 1X/DAY
     Route: 048
  17. VITAMIN D2 [Concomitant]
     Active Substance: ERGOCALCIFEROL
     Indication: Vitamin D deficiency
     Dosage: 50000 IU, EVERY 14 DAYS
     Route: 048

REACTIONS (3)
  - Cerebrovascular accident [Recovered/Resolved]
  - Sickle cell anaemia with crisis [Recovered/Resolved]
  - Acute chest syndrome [Recovered/Resolved]

NARRATIVE: CASE EVENT DATE: 20220503
